FAERS Safety Report 11199042 (Version 1)
Quarter: 2015Q2

REPORT INFORMATION
  Report Type: Other
  Country: BR (occurrence: BR)
  Receive Date: 20150618
  Receipt Date: 20150618
  Transmission Date: 20150821
  Serious: Yes (Other)
  Sender: FDA-Public Use
  Company Number: BR-SHIRE-BR201506119

PATIENT
  Age: 12 Year
  Sex: Male

DRUGS (1)
  1. ELAPRASE [Suspect]
     Active Substance: IDURSULFASE
     Indication: MUCOPOLYSACCHARIDOSIS II
     Dosage: UNK UNK, UNKNOWN
     Route: 041

REACTIONS (6)
  - Dyspnoea [Unknown]
  - Oedema [Unknown]
  - Respiratory tract oedema [Unknown]
  - Hypersensitivity [Unknown]
  - Infusion related reaction [Unknown]
  - Rash [Unknown]

NARRATIVE: CASE EVENT DATE: 201502
